FAERS Safety Report 5037029-9 (Version None)
Quarter: 2006Q2

REPORT INFORMATION
  Report Type: 
  Country: None (occurrence: None)
  Receive Date: 20060601
  Receipt Date: 20060212
  Transmission Date: 20061013
  Serious: No
  Sender: FDA-Public Use
  Company Number: 2006PV008540

PATIENT
  Age: 50 Year
  Sex: Female
  Weight: 37.6486 kg

DRUGS (5)
  1. BYETTA [Suspect]
     Indication: DIABETES MELLITUS NON-INSULIN-DEPENDENT
     Dosage: SEE IMAGE
     Route: 058
     Dates: start: 20051101, end: 20051201
  2. BYETTA [Suspect]
     Indication: DIABETES MELLITUS NON-INSULIN-DEPENDENT
     Dosage: SEE IMAGE
     Route: 058
     Dates: start: 20051201
  3. STARLIX [Concomitant]
  4. PREDNISONE TAB [Concomitant]
  5. CELLCEPT [Concomitant]

REACTIONS (3)
  - BLOOD GLUCOSE INCREASED [None]
  - TOOTH INFECTION [None]
  - WEIGHT DECREASED [None]
